FAERS Safety Report 4649069-X (Version None)
Quarter: 2005Q2

REPORT INFORMATION
  Report Type: 
  Country: None (occurrence: None)
  Receive Date: 20050427
  Receipt Date: 20050418
  Transmission Date: 20051028
  Serious: Yes (Hospitalization)
  Sender: FDA-Public Use
  Company Number: 231443K05USA

PATIENT
  Age: 50 Year
  Sex: Female

DRUGS (15)
  1. REBIF [Suspect]
     Indication: MULTIPLE SCLEROSIS
  2. IMMUNOGLOBULINS (IMMUNOGLOBULINS) [Suspect]
     Dates: start: 20050201, end: 20050201
  3. TEGRETOL [Concomitant]
  4. PRILOSEC [Concomitant]
  5. WELLBUTRIN [Concomitant]
  6. PROZAC [Concomitant]
  7. OXYBUTYNIN CHLORIDE [Concomitant]
  8. TRILEPTAL [Concomitant]
  9. TOPAMAX [Concomitant]
  10. PROVIGIL [Concomitant]
  11. RITALIN [Concomitant]
  12. TRAZODONE HCL [Concomitant]
  13. ADVAIR DISKUS 100/50 [Concomitant]
  14. FLONASE [Concomitant]
  15. SALICYLATE (SALICYLATES) [Concomitant]

REACTIONS (6)
  - DRUG HYPERSENSITIVITY [None]
  - HEADACHE [None]
  - HYPERTENSION [None]
  - HYPOAESTHESIA [None]
  - INFUSION RELATED REACTION [None]
  - MULTIPLE SCLEROSIS [None]
